FAERS Safety Report 6808394-4 (Version None)
Quarter: 2010Q2

REPORT INFORMATION
  Report Type: 
  Country: None (occurrence: None)
  Receive Date: 20100629
  Receipt Date: 20090630
  Transmission Date: 20101027
  Serious: Yes (Other)
  Sender: FDA-Public Use
  Company Number: US-PFIZER INC-2009215938

PATIENT

DRUGS (1)
  1. XANAX [Suspect]

REACTIONS (1)
  - DRUG DEPENDENCE [None]
